FAERS Safety Report 9526326 (Version 2)
Quarter: 2013Q4

REPORT INFORMATION
  Report Type: Spontaneous
  Country: GB (occurrence: GB)
  Receive Date: 20130916
  Receipt Date: 20131029
  Transmission Date: 20140711
  Serious: Yes (Other)
  Sender: FDA-Public Use
  Company Number: GB-MYLANLABS-2013S1019836

PATIENT
  Sex: Male

DRUGS (2)
  1. FLUOXETINE [Suspect]
     Indication: PRODUCT USED FOR UNKNOWN INDICATION
  2. FLUOXETINE ACCORD [Suspect]
     Indication: PRODUCT USED FOR UNKNOWN INDICATION

REACTIONS (13)
  - Insomnia [Unknown]
  - Dry skin [Unknown]
  - Pruritus [Unknown]
  - Malaise [Unknown]
  - Dyspepsia [Unknown]
  - Fatigue [Unknown]
  - Depression [Recovered/Resolved]
  - Dry mouth [Recovered/Resolved]
  - Headache [Recovered/Resolved]
  - Pleuritic pain [Recovered/Resolved]
  - Product substitution issue [Unknown]
  - Rash [Recovered/Resolved]
  - Urinary tract infection [Recovered/Resolved]
